FAERS Safety Report 7935847-8 (Version None)
Quarter: 2011Q4

REPORT INFORMATION
  Report Type: 
  Country: None (occurrence: None)
  Receive Date: 20111123
  Receipt Date: 20111117
  Transmission Date: 20120403
  Serious: Yes (Life-Threatening, Hospitalization, Other)
  Sender: FDA-Public Use
  Company Number: PHHY2011DE101329

PATIENT
  Age: 13 Year
  Sex: Male

DRUGS (2)
  1. SANDIMMUNE [Suspect]
     Dosage: 3 MG PER KG BODY WEIGHT PER DAY, UNK
     Route: 048
     Dates: end: 20111001
  2. SANDIMMUNE [Suspect]
     Indication: UVEITIS
     Dosage: 2.5 MG PER KG BODY WEIGHT, UNK
     Route: 048
     Dates: start: 20110901

REACTIONS (4)
  - MALAISE [None]
  - PANCREATITIS ACUTE [None]
  - OEDEMATOUS PANCREATITIS [None]
  - UVEITIS [None]
